FAERS Safety Report 18885224 (Version 1)
Quarter: 2021Q1

REPORT INFORMATION
  Report Type: Spontaneous
  Country: US (occurrence: US)
  Receive Date: 20210211
  Receipt Date: 20210211
  Transmission Date: 20210420
  Serious: Yes (Other)
  Sender: FDA-Public Use
  Company Number: None

PATIENT
  Age: 47 Year
  Sex: Female
  Weight: 122.02 kg

DRUGS (1)
  1. DUPIXENT [Suspect]
     Active Substance: DUPILUMAB
     Indication: DERMATITIS ATOPIC
     Dosage: ?          OTHER DOSE:1 PEN;?
     Route: 058
     Dates: start: 20201217, end: 20210202

REACTIONS (5)
  - Ocular hyperaemia [None]
  - Eye pruritus [None]
  - Eye discharge [None]
  - Hypersensitivity [None]
  - Eye swelling [None]

NARRATIVE: CASE EVENT DATE: 20210211
